FAERS Safety Report 23890829 (Version 1)
Quarter: 2024Q2

REPORT INFORMATION
  Report Type: Spontaneous
  Country: US (occurrence: None)
  Receive Date: 20240523
  Receipt Date: 20240523
  Transmission Date: 20240716
  Serious: Yes (Hospitalization)
  Sender: FDA-Public Use
  Company Number: None

PATIENT
  Age: 64 Year
  Sex: Male

DRUGS (10)
  1. TACROLIMUS [Suspect]
     Active Substance: TACROLIMUS
     Indication: Transplant
     Dosage: FREQUENCY : TWICE A DAY;?
     Route: 048
  2. MYCOPHENOLIC ACID [Suspect]
     Active Substance: MYCOPHENOLIC ACID
     Indication: Transplant
     Dosage: FREQUENCY : TWICE A DAY;?
     Route: 048
  3. Vitamin E 400 units [Concomitant]
  4. Calcium citrate 315mg + vitamin D250mg [Concomitant]
  5. Vitamin C 500mg [Concomitant]
  6. MINERALS\VITAMINS [Concomitant]
     Active Substance: MINERALS\VITAMINS
  7. ROSUVASTATIN [Concomitant]
     Active Substance: ROSUVASTATIN
  8. Vitamin D3 1000 unit [Concomitant]
  9. Mag-oxide 400mg [Concomitant]
  10. TACROLIMUS [Concomitant]
     Active Substance: TACROLIMUS

REACTIONS (2)
  - Pneumonia [None]
  - Meningitis [None]

NARRATIVE: CASE EVENT DATE: 20240502
